FAERS Safety Report 23953417 (Version 1)
Quarter: 2024Q2

REPORT INFORMATION
  Report Type: Spontaneous
  Country: US (occurrence: US)
  Receive Date: 20240608
  Receipt Date: 20240608
  Transmission Date: 20240716
  Serious: Yes (Other)
  Sender: FDA-Public Use
  Company Number: US-AUROBINDO-AUR-APL-2024-026747

PATIENT
  Age: 59 Year
  Sex: Female

DRUGS (4)
  1. VASOPRESSIN [Suspect]
     Active Substance: VASOPRESSIN
     Indication: Vasoplegia syndrome
     Dosage: UNK
     Route: 065
  2. NOREPINEPHRINE [Suspect]
     Active Substance: NOREPINEPHRINE\NOREPINEPHRINE BITARTRATE
     Indication: Vasoplegia syndrome
     Dosage: UNK
     Route: 065
  3. EPINEPHRINE [Suspect]
     Active Substance: EPINEPHRINE
     Indication: Vasoplegia syndrome
     Dosage: UNK
     Route: 065
  4. NIMODIPINE [Concomitant]
     Active Substance: NIMODIPINE
     Indication: Subarachnoid haemorrhage
     Dosage: 60 MILLIGRAM
     Route: 065

REACTIONS (1)
  - Drug ineffective [Unknown]
